FAERS Safety Report 6901890-0 (Version None)
Quarter: 2010Q3

REPORT INFORMATION
  Report Type: 
  Country: None (occurrence: None)
  Receive Date: 20100803
  Receipt Date: 20080410
  Transmission Date: 20110219
  Serious: No
  Sender: FDA-Public Use
  Company Number: US-PFIZER INC-2008027409

PATIENT
  Sex: Male
  Weight: 108.9 kg

DRUGS (1)
  1. LYRICA [Suspect]
     Indication: COMPLEX REGIONAL PAIN SYNDROME
     Dates: start: 20080101, end: 20080325

REACTIONS (4)
  - AMNESIA [None]
  - BREAKTHROUGH PAIN [None]
  - CONFUSIONAL STATE [None]
  - PALPITATIONS [None]
